FAERS Safety Report 9014870 (Version 2)
Quarter: 2013Q1

REPORT INFORMATION
  Report Type: Spontaneous
  Country: US (occurrence: US)
  Receive Date: 20130116
  Receipt Date: 20130312
  Transmission Date: 20140127
  Serious: No
  Sender: FDA-Public Use
  Company Number: US-BIOGENIDEC-2013BI001548

PATIENT
  Sex: Female

DRUGS (3)
  1. TYSABRI [Suspect]
     Indication: MULTIPLE SCLEROSIS
     Route: 042
  2. TYSABRI [Suspect]
     Indication: MULTIPLE SCLEROSIS
     Route: 042
     Dates: start: 20121004
  3. AVONEX [Concomitant]
     Indication: MULTIPLE SCLEROSIS
     Route: 030
     Dates: start: 20070813

REACTIONS (7)
  - Migraine [Unknown]
  - Neck pain [Unknown]
  - Pain in extremity [Unknown]
  - Myofascial pain syndrome [Unknown]
  - Metal poisoning [Unknown]
  - Paralysis [Unknown]
  - Road traffic accident [Recovered/Resolved]
